FAERS Safety Report 17166414 (Version 5)
Quarter: 2020Q1

REPORT INFORMATION
  Report Type: Spontaneous
  Country: US (occurrence: US)
  Receive Date: 20191217
  Receipt Date: 20200330
  Transmission Date: 20200409
  Serious: Yes (Hospitalization)
  Sender: FDA-Public Use
  Company Number: US-ACTELION-A-NJ2019-199268

PATIENT
  Age: 77 Year
  Sex: Male
  Weight: 77.1 kg

DRUGS (5)
  1. AMBRISENTAN [Concomitant]
     Active Substance: AMBRISENTAN
  2. UPTRAVI [Suspect]
     Active Substance: SELEXIPAG
     Dosage: 800 MCG, BID
     Route: 048
  3. UPTRAVI [Suspect]
     Active Substance: SELEXIPAG
     Indication: PULMONARY ARTERIAL HYPERTENSION
     Dosage: 200 MCG, BID
     Route: 048
  4. UPTRAVI [Suspect]
     Active Substance: SELEXIPAG
     Dosage: 1000 MCG, BID
     Route: 048
  5. UPTRAVI [Suspect]
     Active Substance: SELEXIPAG
     Dosage: 1200 MCG, Q12HRS
     Route: 048
     Dates: start: 20200104

REACTIONS (14)
  - Condition aggravated [Unknown]
  - Dyspnoea exertional [Unknown]
  - Diarrhoea [Not Recovered/Not Resolved]
  - Decreased appetite [Unknown]
  - Gingival pain [Unknown]
  - Fatigue [Unknown]
  - Chromaturia [Unknown]
  - Insomnia [Unknown]
  - Weight decreased [Unknown]
  - Dyspnoea [Unknown]
  - Headache [Unknown]
  - Pulmonary arterial hypertension [Unknown]
  - Incorrect dose administered [Unknown]
  - Asthenia [Unknown]

NARRATIVE: CASE EVENT DATE: 20200109
